FAERS Safety Report 6891187-X (Version None)
Quarter: 2010Q3

REPORT INFORMATION
  Report Type: 
  Country: None (occurrence: None)
  Receive Date: 20100731
  Receipt Date: 20090618
  Transmission Date: 20110219
  Serious: No
  Sender: FDA-Public Use
  Company Number: US-PFIZER INC-2006100435

PATIENT
  Sex: Male
  Weight: 88.435 kg

DRUGS (6)
  1. LIPITOR [Suspect]
     Indication: BLOOD CHOLESTEROL INCREASED
     Dosage: 40 MG, 1X/DAY
     Route: 048
     Dates: start: 20060101, end: 20090422
  2. LIPITOR [Suspect]
     Dosage: 10 MG, 1X/DAY
     Dates: start: 20090313, end: 20090422
  3. ALLOPURINOL [Concomitant]
     Indication: BLOOD URIC ACID INCREASED
     Dosage: UNK
     Route: 065
  4. WARFARIN SODIUM [Concomitant]
     Indication: HYPERTENSION
     Dosage: UNK
     Route: 065
  5. METFORMIN [Concomitant]
     Dosage: UNK
  6. NORVASC [Concomitant]
     Dosage: UNK

REACTIONS (3)
  - MUSCULOSKELETAL PAIN [None]
  - NEUROPATHY PERIPHERAL [None]
  - PAIN [None]
